FAERS Safety Report 6385177-3 (Version None)
Quarter: 2009Q4

REPORT INFORMATION
  Report Type: 
  Country: None (occurrence: None)
  Receive Date: 20091002
  Receipt Date: 20090714
  Transmission Date: 20100525
  Serious: No
  Sender: FDA-Public Use
  Company Number: US-ASTRAZENECA-2005UW07676

PATIENT
  Age: 67 Year
  Sex: Female
  Weight: 65.3 kg

DRUGS (17)
  1. ARIMIDEX [Suspect]
     Indication: BREAST CANCER FEMALE
     Route: 048
     Dates: start: 20040520
  2. SINGULAIR [Concomitant]
  3. MAXAIR [Concomitant]
  4. VERAPAMIL [Concomitant]
  5. NEURONTIN [Concomitant]
  6. PULMICORT [Concomitant]
     Route: 055
  7. TAZARAC [Concomitant]
     Route: 061
  8. LORAZEPAM [Concomitant]
  9. CALCIUM [Concomitant]
  10. VITAMIN D [Concomitant]
  11. MULTI-VITAMIN [Concomitant]
  12. IBUPROFEN [Concomitant]
  13. RANITIDINE [Concomitant]
  14. COLACE [Concomitant]
  15. METAMUCIL [Concomitant]
  16. ASPIRIN [Concomitant]
  17. FOSAMAX [Concomitant]

REACTIONS (13)
  - ARTHRALGIA [None]
  - BLOOD OESTROGEN INCREASED [None]
  - BONE DENSITY DECREASED [None]
  - BONE PAIN [None]
  - CATARACT [None]
  - DISTURBANCE IN ATTENTION [None]
  - FATIGUE [None]
  - FOOT FRACTURE [None]
  - HOT FLUSH [None]
  - HYPERTENSION [None]
  - OSTEOPENIA [None]
  - VULVOVAGINAL DRYNESS [None]
  - WEIGHT DECREASED [None]
